FAERS Safety Report 8860557 (Version 1)
Quarter: 2012Q4

REPORT INFORMATION
  Report Type: 
  Country: US (occurrence: US)
  Receive Date: 20121025
  Receipt Date: 20121025
  Transmission Date: 20130627
  Serious: Yes (Other)
  Sender: FDA-Public Use
  Company Number: US-PFIZER INC-2012264268

PATIENT
  Age: 53 Year
  Sex: Female
  Weight: 86 kg

DRUGS (5)
  1. LIPITOR [Suspect]
     Indication: BLOOD CHOLESTEROL INCREASED
     Dosage: 40 mg, 1x/day
     Route: 048
  2. LISINOPRIL [Concomitant]
     Dosage: 10 mg, UNK
  3. METFORMIN [Concomitant]
     Dosage: 500 mg, 2x/day
  4. OMEPRAZOLE [Concomitant]
     Dosage: 20 mg, 2x/day
  5. ASPIRIN [Concomitant]
     Dosage: 81 mg, UNK

REACTIONS (1)
  - Thalassaemia [Unknown]
